FAERS Safety Report 25044355 (Version 1)
Quarter: 2025Q1

REPORT INFORMATION
  Report Type: Spontaneous
  Country: GB (occurrence: GB)
  Receive Date: 20250306
  Receipt Date: 20250306
  Transmission Date: 20250409
  Serious: Yes (Other)
  Sender: AMGEN
  Company Number: GB-AMGEN-GBRSP2025042576

PATIENT

DRUGS (1)
  1. PROLIA [Suspect]
     Active Substance: DENOSUMAB
     Indication: Bone marrow oedema
     Route: 058

REACTIONS (3)
  - Joint space narrowing [Unknown]
  - Drug ineffective for unapproved indication [Unknown]
  - Off label use [Unknown]
